FAERS Safety Report 16907363 (Version 3)
Quarter: 2020Q2

REPORT INFORMATION
  Report Type: Spontaneous
  Country: ES (occurrence: ES)
  Receive Date: 20191011
  Receipt Date: 20200603
  Transmission Date: 20200713
  Serious: Yes (Hospitalization)
  Sender: FDA-Public Use
  Company Number: ES-TEVA-2019-ES-1119413

PATIENT
  Age: 75 Year
  Sex: Female

DRUGS (6)
  1. AMLODIPINO (2503A) [Suspect]
     Active Substance: AMLODIPINE BESYLATE
     Indication: HYPERTENSION
     Route: 048
     Dates: start: 20190706, end: 20190709
  2. MIRTAZAPINA (2704A) [Suspect]
     Active Substance: MIRTAZAPINE
     Route: 048
     Dates: start: 20190709, end: 20190726
  3. CEFAZOLINA SODICA (583SO) [Concomitant]
     Indication: PROPHYLAXIS
     Route: 042
     Dates: start: 20190707, end: 20190707
  4. ENALAPRIL MALEATO (2142MA) [Concomitant]
     Active Substance: ENALAPRIL MALEATE
     Indication: HYPERTENSION
     Route: 048
     Dates: start: 20180901
  5. ENOXAPARINA SODICA (2482SO) [Concomitant]
     Active Substance: ENOXAPARIN SODIUM
     Indication: PROPHYLAXIS
     Route: 058
     Dates: start: 20190706, end: 20190722
  6. ATORVASTATINA (7400A) [Concomitant]
     Active Substance: ATORVASTATIN
     Indication: DYSLIPIDAEMIA
     Route: 048
     Dates: start: 20190401

REACTIONS (1)
  - Hepatitis cholestatic [Recovering/Resolving]

NARRATIVE: CASE EVENT DATE: 20190715
